FAERS Safety Report 18108602 (Version 1)
Quarter: 2020Q3

REPORT INFORMATION
  Report Type: Spontaneous
  Country: TH (occurrence: TH)
  Receive Date: 20200804
  Receipt Date: 20200804
  Transmission Date: 20201103
  Serious: Yes (Hospitalization, Other)
  Sender: FDA-Public Use
  Company Number: TH-LUPIN PHARMACEUTICALS INC.-2020-04143

PATIENT
  Age: 57 Year
  Sex: Male

DRUGS (6)
  1. BACLOFEN. [Concomitant]
     Active Substance: BACLOFEN
     Indication: DRUG THERAPY
     Dosage: 30 MILLIGRAM, QD
     Route: 065
  2. LORAZEPAM. [Concomitant]
     Active Substance: LORAZEPAM
     Indication: MAJOR DEPRESSION
     Dosage: 1 MILLIGRAM, QD (BEFORE BEDTIME)
     Route: 065
  3. SODIUM CHLORIDE. [Concomitant]
     Active Substance: SODIUM CHLORIDE
     Indication: BOWEL PREPARATION
     Dosage: 60 MILLILITER (HYPERTONIC SODIUM CHLORIDE) (ENEMA 20?40 ML PER TIMES, THREE TIMES A WEEK )
     Route: 054
  4. SERTRALINE [Suspect]
     Active Substance: SERTRALINE HYDROCHLORIDE
     Indication: MAJOR DEPRESSION
     Dosage: 25 MILLIGRAM, QD
     Route: 065
  5. OXYBUTYNIN. [Concomitant]
     Active Substance: OXYBUTYNIN CHLORIDE
     Indication: DRUG THERAPY
     Dosage: 15 MILLIGRAM, QD
     Route: 016
  6. SODIUM CHLORIDE. [Concomitant]
     Active Substance: SODIUM CHLORIDE
     Dosage: 120 MILLILITER (ENEMA 20?40 ML PER TIMES, THREE TIMES A WEEK)
     Route: 054

REACTIONS (6)
  - Volvulus [Unknown]
  - Large intestinal obstruction [Unknown]
  - Hyponatraemia [Recovered/Resolved]
  - Peritonitis [Unknown]
  - Intestinal pseudo-obstruction [Unknown]
  - Hypokalaemia [Unknown]
